FAERS Safety Report 9706712 (Version 1)
Quarter: 2013Q4

REPORT INFORMATION
  Report Type: Spontaneous
  Country: US (occurrence: US)
  Receive Date: 20131125
  Receipt Date: 20131125
  Transmission Date: 20140711
  Serious: Yes (Hospitalization, Other)
  Sender: FDA-Public Use
  Company Number: US-MYLANLABS-2013S1026127

PATIENT
  Age: 52 Year
  Sex: Female
  Weight: 55.34 kg

DRUGS (13)
  1. PRAZOSIN HYDROCHLORIDE CAPSULES, USP [Suspect]
     Indication: POST-TRAUMATIC STRESS DISORDER
     Route: 048
     Dates: start: 201309, end: 20131010
  2. PRAZOSIN HYDROCHLORIDE CAPSULES, USP [Suspect]
     Indication: SLEEP TERROR
     Route: 048
     Dates: start: 201309, end: 20131010
  3. PRAZOSIN HYDROCHLORIDE CAPSULES, USP [Suspect]
     Indication: OFF LABEL USE
     Route: 048
     Dates: start: 201309, end: 20131010
  4. PRAZOSIN HYDROCHLORIDE CAPSULES, USP [Suspect]
     Indication: POST-TRAUMATIC STRESS DISORDER
     Route: 048
     Dates: start: 20131010, end: 20131104
  5. PRAZOSIN HYDROCHLORIDE CAPSULES, USP [Suspect]
     Indication: SLEEP TERROR
     Route: 048
     Dates: start: 20131010, end: 20131104
  6. PRAZOSIN HYDROCHLORIDE CAPSULES, USP [Suspect]
     Indication: OFF LABEL USE
     Route: 048
     Dates: start: 20131010, end: 20131104
  7. SULAR [Concomitant]
     Indication: PRINZMETAL ANGINA
     Route: 048
  8. PRISTIQ [Concomitant]
     Indication: POST-TRAUMATIC STRESS DISORDER
     Dosage: ALSO USED FOR NIGHT TERRORS
     Route: 048
  9. CLONAZEPAM [Concomitant]
     Indication: POST-TRAUMATIC STRESS DISORDER
     Dosage: ALSO USED FOR NIGHT TERRORS
     Route: 048
  10. BUSPIRONE HYDROCHLORIDE [Concomitant]
     Indication: POST-TRAUMATIC STRESS DISORDER
     Dosage: ALSO USED FOR NIGHT TERRORS
     Route: 048
  11. ARMOUR THYROID [Concomitant]
     Indication: HYPOTHYROIDISM
     Route: 048
  12. NORCO [Concomitant]
     Indication: FIBROMYALGIA
     Dosage: REPORTED DOSE:  10MG/325MG
     Route: 048
  13. METRONIDAZOLE [Concomitant]
     Indication: ROSACEA
     Route: 061

REACTIONS (13)
  - Drug ineffective for unapproved indication [Recovered/Resolved]
  - Colon injury [Not Recovered/Not Resolved]
  - Colitis [Not Recovered/Not Resolved]
  - Diarrhoea [Not Recovered/Not Resolved]
  - Abdominal pain [Not Recovered/Not Resolved]
  - Abdominal distension [Not Recovered/Not Resolved]
  - Aphagia [Recovered/Resolved]
  - Immune system disorder [Not Recovered/Not Resolved]
  - Dizziness [Not Recovered/Not Resolved]
  - Nausea [Not Recovered/Not Resolved]
  - Body temperature increased [Recovered/Resolved]
  - Post-traumatic stress disorder [Recovered/Resolved]
  - Sleep terror [Recovered/Resolved]
